FAERS Safety Report 4899716-2 (Version None)
Quarter: 2006Q1

REPORT INFORMATION
  Report Type: 
  Country: None (occurrence: None)
  Receive Date: 20060118
  Receipt Date: 20050722
  Transmission Date: 20060701
  Serious: Yes (Hospitalization)
  Sender: FDA-Public Use
  Company Number: 2005001415

PATIENT
  Age: 60 Year
  Sex: Male

DRUGS (1)
  1. TARCEVA [Suspect]
     Indication: PANCREATIC CARCINOMA
     Dosage: 100 MG (QD), ORAL
     Route: 048
     Dates: start: 20050706, end: 20050715

REACTIONS (4)
  - DYSPNOEA [None]
  - PNEUMONITIS [None]
  - PYREXIA [None]
  - RASH [None]
